FAERS Safety Report 15354606 (Version 1)
Quarter: 2018Q3

REPORT INFORMATION
  Report Type: Spontaneous
  Country: JP (occurrence: JP)
  Receive Date: 20180906
  Receipt Date: 20180906
  Transmission Date: 20181010
  Serious: Yes (Other)
  Sender: FDA-Public Use
  Company Number: JP-ROCHE-2180519

PATIENT
  Age: 76 Year
  Sex: Male

DRUGS (1)
  1. LUCENTIS [Suspect]
     Active Substance: RANIBIZUMAB
     Indication: RETINAL VEIN OCCLUSION
     Dosage: UNK
     Route: 050

REACTIONS (5)
  - Vitreous haemorrhage [Unknown]
  - Retinal vein occlusion [Unknown]
  - Cataract [Unknown]
  - Visual acuity reduced [Unknown]
  - Retinal neovascularisation [Unknown]
